FAERS Safety Report 6321789-0 (Version None)
Quarter: 2009Q3

REPORT INFORMATION
  Report Type: 
  Country: None (occurrence: None)
  Receive Date: 20090824
  Receipt Date: 20090820
  Transmission Date: 20100115
  Serious: Yes (Death, Hospitalization)
  Sender: FDA-Public Use
  Company Number: KR-BRISTOL-MYERS SQUIBB COMPANY-14748560

PATIENT
  Age: 64 Year
  Sex: Male
  Weight: 56 kg

DRUGS (3)
  1. CETUXIMAB [Suspect]
     Indication: GASTROOESOPHAGEAL CANCER
     Dosage: CETUXIMAB 5MG/ML;1ST INF ON 09MAR09;RECENT INF ON 23JUL09;
     Route: 042
     Dates: start: 20090309, end: 20090723
  2. CISPLATIN [Suspect]
     Indication: GASTROOESOPHAGEAL CANCER
     Dosage: ON DAY 1 OF 3 WEEK CYCLE;1ST INF ON 09MAR09;RECENT INF ON 23JUL09;
     Route: 042
     Dates: start: 20090309, end: 20090723
  3. XELODA [Suspect]
     Indication: GASTROOESOPHAGEAL CANCER
     Dosage: FORM TABS;ON DAY 1-15 OF 3 WK CYCLE;1ST INF ON 09MAR09;RECENT INF ON 30JUL09;
     Route: 048
     Dates: start: 20090309, end: 20090730

REACTIONS (1)
  - HYPERBILIRUBINAEMIA [None]
